FAERS Safety Report 15047690 (Version 2)
Quarter: 2018Q3

REPORT INFORMATION
  Report Type: Spontaneous
  Country: US (occurrence: US)
  Receive Date: 20180621
  Receipt Date: 20180725
  Transmission Date: 20181010
  Serious: No
  Sender: FDA-Public Use
  Company Number: US-VIFOR (INTERNATIONAL) INC.-VIT-2018-06183

PATIENT
  Age: 68 Year
  Sex: Female
  Weight: 54.48 kg

DRUGS (11)
  1. CARVEDILOL. [Concomitant]
     Active Substance: CARVEDILOL
  2. ACETYLSALICYLIC ACID [Concomitant]
     Active Substance: ASPIRIN
  3. PROMETHAZINE [Concomitant]
     Active Substance: PROMETHAZINE\PROMETHAZINE HYDROCHLORIDE
  4. NORCO [Concomitant]
     Active Substance: ACETAMINOPHEN\HYDROCODONE BITARTRATE
  5. WARFARIN SODIUM. [Concomitant]
     Active Substance: WARFARIN SODIUM
  6. RENVELA [Concomitant]
     Active Substance: SEVELAMER CARBONATE
  7. KLONOPIN [Concomitant]
     Active Substance: CLONAZEPAM
  8. WARFARIN SODIUM. [Concomitant]
     Active Substance: WARFARIN SODIUM
  9. ALLOPURINOL. [Concomitant]
     Active Substance: ALLOPURINOL
  10. VELTASSA [Suspect]
     Active Substance: PATIROMER
     Indication: HYPERKALAEMIA
     Route: 048
     Dates: start: 20160310
  11. GABAPENTIN. [Concomitant]
     Active Substance: GABAPENTIN

REACTIONS (1)
  - Hypotension [Not Recovered/Not Resolved]

NARRATIVE: CASE EVENT DATE: 20180615
